FAERS Safety Report 25721585 (Version 1)
Quarter: 2025Q3

REPORT INFORMATION
  Report Type: Spontaneous
  Country: GB (occurrence: GB)
  Receive Date: 20250825
  Receipt Date: 20250825
  Transmission Date: 20251020
  Serious: Yes (Other)
  Sender: MYLAN
  Company Number: None

PATIENT
  Sex: Male

DRUGS (8)
  1. ATORVASTATIN [Suspect]
     Active Substance: ATORVASTATIN
     Indication: Blood cholesterol increased
     Dates: start: 20230404, end: 20250820
  2. ATORVASTATIN [Suspect]
     Active Substance: ATORVASTATIN
     Route: 065
     Dates: start: 20230404, end: 20250820
  3. ATORVASTATIN [Suspect]
     Active Substance: ATORVASTATIN
     Route: 065
     Dates: start: 20230404, end: 20250820
  4. ATORVASTATIN [Suspect]
     Active Substance: ATORVASTATIN
     Dates: start: 20230404, end: 20250820
  5. WARFARIN [Concomitant]
     Active Substance: WARFARIN
     Indication: Pulmonary embolism
  6. WARFARIN [Concomitant]
     Active Substance: WARFARIN
     Route: 065
  7. WARFARIN [Concomitant]
     Active Substance: WARFARIN
     Route: 065
  8. WARFARIN [Concomitant]
     Active Substance: WARFARIN

REACTIONS (1)
  - Suicidal ideation [Unknown]
